FAERS Safety Report 25979768 (Version 2)
Quarter: 2025Q4

REPORT INFORMATION
  Report Type: Spontaneous
  Country: US (occurrence: US)
  Receive Date: 20251030
  Receipt Date: 20251112
  Transmission Date: 20260117
  Serious: Yes (Other)
  Sender: NOVO NORDISK
  Company Number: US-NOVOPROD-1547037

PATIENT
  Age: 60 Year
  Sex: Female

DRUGS (2)
  1. OZEMPIC [Suspect]
     Active Substance: SEMAGLUTIDE
     Indication: Weight control
     Dosage: 2 MG, QW
     Dates: start: 20251023, end: 2025
  2. OZEMPIC [Suspect]
     Active Substance: SEMAGLUTIDE
     Indication: Steroid diabetes
     Dosage: 2 MG, QW
     Route: 058
     Dates: start: 2022, end: 2025

REACTIONS (8)
  - Osteonecrosis [Unknown]
  - Arthritis [Unknown]
  - Fall [Unknown]
  - Wrist fracture [Unknown]
  - Fall [Unknown]
  - Wrist fracture [Unknown]
  - Illness [Unknown]
  - Product use in unapproved indication [Unknown]

NARRATIVE: CASE EVENT DATE: 20220101
